FAERS Safety Report 22256414 (Version 1)
Quarter: 2023Q2

REPORT INFORMATION
  Report Type: Spontaneous
  Country: US (occurrence: US)
  Receive Date: 20230426
  Receipt Date: 20230426
  Transmission Date: 20230721
  Serious: Yes (Hospitalization, Other)
  Sender: FDA-Public Use
  Company Number: US-FreseniusKabi-FK202305154

PATIENT
  Age: 7 Year
  Sex: Male

DRUGS (6)
  1. INTRALIPID [Suspect]
     Active Substance: EGG PHOSPHOLIPIDS\GLYCERIN\SOYBEAN OIL
     Indication: Fatty acid deficiency
     Route: 051
  2. SMOFLIPID [Suspect]
     Active Substance: FISH OIL\MEDIUM-CHAIN TRIGLYCERIDES\OLIVE OIL\SOYBEAN OIL
     Indication: Fatty acid deficiency
     Dosage: 1.5 G/KG DAILY
     Route: 051
  3. OMEGAVEN [Suspect]
     Active Substance: FISH OIL
     Indication: Fatty acid deficiency
     Route: 051
     Dates: start: 20230411
  4. DEXTROSE [Suspect]
     Active Substance: DEXTROSE\DEXTROSE MONOHYDRATE
     Indication: Product used for unknown indication
     Dosage: INFUSION RATE 6.5 MG/KG/MIN
  5. AMINO ACIDS, SOURCE UNSPECIFIED [Suspect]
     Active Substance: AMINO ACIDS, SOURCE UNSPECIFIED
     Indication: Product used for unknown indication
     Dosage: 2G/KG
  6. COPPER [Suspect]
     Active Substance: COPPER
     Indication: Product used for unknown indication

REACTIONS (3)
  - Inflammation [Unknown]
  - Respiratory distress [Unknown]
  - Vascular device infection [Unknown]
